FAERS Safety Report 7373368-4 (Version None)
Quarter: 2011Q1

REPORT INFORMATION
  Report Type: 
  Country: None (occurrence: None)
  Receive Date: 20110324
  Receipt Date: 20110311
  Transmission Date: 20110831
  Serious: Yes (Other)
  Sender: FDA-Public Use
  Company Number: CA-MYLANLABS-2011S1005480

PATIENT
  Age: 37 Year
  Sex: Female

DRUGS (1)
  1. TACROLIMUS [Suspect]
     Indication: LIVER TRANSPLANT
     Route: 065

REACTIONS (3)
  - DEMYELINATION [None]
  - OSMOTIC DEMYELINATION SYNDROME [None]
  - CEREBRAL ISCHAEMIA [None]
